FAERS Safety Report 17981455 (Version 2)
Quarter: 2021Q1

REPORT INFORMATION
  Report Type: Other
  Country: US (occurrence: US)
  Receive Date: 20200706
  Receipt Date: 20210330
  Transmission Date: 20210419
  Serious: Yes (Other)
  Sender: FDA-Public Use
  Company Number: US-ROCHE-2576434

PATIENT
  Sex: Female
  Weight: 67.19 kg

DRUGS (14)
  1. POTASSIUM CHLORIDE. [Concomitant]
     Active Substance: POTASSIUM CHLORIDE
     Route: 048
  2. DULOXETINE HYDROCHLORIDE. [Concomitant]
     Active Substance: DULOXETINE HYDROCHLORIDE
     Route: 048
  3. ZELBORAF [Suspect]
     Active Substance: VEMURAFENIB
     Indication: THROMBOCYTOPENIA
  4. VEMURAFENIB. [Concomitant]
     Active Substance: VEMURAFENIB
     Indication: THROMBOCYTOPENIA
     Route: 048
  5. FLONASE [Concomitant]
     Active Substance: FLUTICASONE PROPIONATE
  6. ATENOLOL. [Concomitant]
     Active Substance: ATENOLOL
     Route: 048
  7. VEMURAFENIB. [Concomitant]
     Active Substance: VEMURAFENIB
     Indication: ERDHEIM-CHESTER DISEASE
  8. ZELBORAF [Suspect]
     Active Substance: VEMURAFENIB
     Indication: HISTIOCYTOSIS
     Dosage: TAKE 2 TABLET(S) BY MOUTH TWICE A DAY
     Route: 048
     Dates: start: 201807
  9. ZELBORAF [Suspect]
     Active Substance: VEMURAFENIB
     Indication: ERDHEIM-CHESTER DISEASE
  10. SYNTHROID [Concomitant]
     Active Substance: LEVOTHYROXINE SODIUM
     Route: 048
  11. ZELBORAF [Suspect]
     Active Substance: VEMURAFENIB
     Indication: ERDHEIM-CHESTER DISEASE
  12. CETIRIZINE HCL [Concomitant]
     Active Substance: CETIRIZINE HYDROCHLORIDE
     Route: 048
  13. CALCIUM CARBONATE. [Concomitant]
     Active Substance: CALCIUM CARBONATE
     Route: 048
  14. PRILOSEC [Concomitant]
     Active Substance: OMEPRAZOLE MAGNESIUM
     Route: 048

REACTIONS (14)
  - Diarrhoea [Unknown]
  - Thyroid function test abnormal [Unknown]
  - Rhinorrhoea [Unknown]
  - Cough [Unknown]
  - Ill-defined disorder [Unknown]
  - Throat irritation [Unknown]
  - Off label use [Unknown]
  - Vitreous floaters [Unknown]
  - Cataract [Unknown]
  - Thyroid disorder [Unknown]
  - Mass [Unknown]
  - Fatigue [Unknown]
  - Photosensitivity reaction [Unknown]
  - Depression [Unknown]
